FAERS Safety Report 6841471-0 (Version None)
Quarter: 2010Q3

REPORT INFORMATION
  Report Type: 
  Country: None (occurrence: None)
  Receive Date: 20100714
  Receipt Date: 20070629
  Transmission Date: 20110219
  Serious: No
  Sender: FDA-Public Use
  Company Number: US-PFIZER INC-2007055803

PATIENT
  Sex: Female
  Weight: 65.8 kg

DRUGS (5)
  1. CHANTIX [Suspect]
     Indication: SMOKING CESSATION THERAPY
     Dates: start: 20070627
  2. LEXAPRO [Concomitant]
  3. VALTREX [Concomitant]
  4. VITAMIN B-12 [Concomitant]
  5. L-LYSINE [Concomitant]

REACTIONS (2)
  - NAUSEA [None]
  - VERTIGO [None]
